FAERS Safety Report 11062227 (Version 1)
Quarter: 2015Q2

REPORT INFORMATION
  Report Type: Spontaneous
  Country: CA (occurrence: None)
  Receive Date: 20150422
  Receipt Date: 20150422
  Transmission Date: 20150821
  Serious: Yes (Other)
  Sender: FDA-Public Use
  Company Number: 2015-CA-000005

PATIENT
  Age: 63 Year
  Sex: Female

DRUGS (4)
  1. ERYTHROMYCIN BRAND (ERYTHROMYCIN) [Suspect]
     Active Substance: ERYTHROMYCIN
     Route: 048
  2. ASPIRIN. [Concomitant]
     Active Substance: ASPIRIN
  3. SYNTHROID [Concomitant]
     Active Substance: LEVOTHYROXINE SODIUM
  4. THYROXINE (LEVOTHYROXINE) [Concomitant]

REACTIONS (1)
  - Choking sensation [None]
